FAERS Safety Report 17006772 (Version 1)
Quarter: 2019Q4

REPORT INFORMATION
  Report Type: Spontaneous
  Country: US (occurrence: US)
  Receive Date: 20191107
  Receipt Date: 20191107
  Transmission Date: 20200122
  Serious: No
  Sender: FDA-Public Use
  Company Number: US-TARO-2019TAR00288

PATIENT
  Age: 76 Year
  Sex: Female

DRUGS (1)
  1. MUPIROCIN OINTMENT USP 2% [Suspect]
     Active Substance: MUPIROCIN
     Dosage: UNK
     Dates: start: 201904

REACTIONS (4)
  - Accidental exposure to product [Unknown]
  - Sensory disturbance [Not Recovered/Not Resolved]
  - Lip blister [Not Recovered/Not Resolved]
  - Blister [Not Recovered/Not Resolved]

NARRATIVE: CASE EVENT DATE: 201904
